FAERS Safety Report 24066030 (Version 2)
Quarter: 2025Q2

REPORT INFORMATION
  Report Type: Spontaneous
  Country: CN (occurrence: CN)
  Receive Date: 20240709
  Receipt Date: 20250608
  Transmission Date: 20250716
  Serious: Yes (Hospitalization)
  Sender: COHERUS
  Company Number: CN-SHANGHAI JUNSHI BIOSCIENCES CO., LTD.-CN2024010485

PATIENT

DRUGS (1)
  1. TORIPALIMAB [Suspect]
     Active Substance: TORIPALIMAB
     Indication: Ovarian cancer recurrent
     Dosage: 240 MG, Q3W
     Route: 042

REACTIONS (5)
  - Polymyositis [Recovering/Resolving]
  - Hypothyroidism [Recovering/Resolving]
  - Drug eruption [Recovering/Resolving]
  - Hepatic function abnormal [Recovering/Resolving]
  - Off label use [Unknown]
